FAERS Safety Report 20959696 (Version 2)
Quarter: 2022Q2

REPORT INFORMATION
  Report Type: Report from Study
  Country: BE (occurrence: BE)
  Receive Date: 20220614
  Receipt Date: 20220628
  Transmission Date: 20220721
  Serious: Yes (Hospitalization, Disabling, Other)
  Sender: FDA-Public Use
  Company Number: BE-SEATTLE GENETICS-2022SGN05442

PATIENT
  Age: 71 Year
  Sex: Female
  Weight: 90 kg

DRUGS (21)
  1. BRENTUXIMAB VEDOTIN [Suspect]
     Active Substance: BRENTUXIMAB VEDOTIN
     Indication: Diffuse large B-cell lymphoma
     Dosage: 1.2 MG/KG IV D1 Q21D CYCLE
     Route: 042
     Dates: start: 20220208, end: 20220517
  2. RITUXIMAB [Suspect]
     Active Substance: RITUXIMAB
     Indication: Diffuse large B-cell lymphoma
     Dosage: 1400 MG, Q3WEEKS
     Route: 058
     Dates: start: 20220208, end: 20220517
  3. LENALIDOMIDE [Suspect]
     Active Substance: LENALIDOMIDE
     Indication: Diffuse large B-cell lymphoma
     Dosage: 10 MG, PO QD
     Route: 048
     Dates: start: 20220208, end: 20220504
  4. ACYCLOVIR [Concomitant]
     Active Substance: ACYCLOVIR
     Dosage: 800 MG, 0.5 TAB, BID
     Route: 065
  5. ASPIRIN [Concomitant]
     Active Substance: ASPIRIN
     Dosage: 80 MG (1 TABLET), QD
     Route: 065
  6. LACTULOSE [Concomitant]
     Active Substance: LACTULOSE
     Indication: Constipation
     Dosage: 15 ML/ MIN 1 HR/MAX 60 ML PER 24 HOURS PRN
     Route: 065
  7. LITICAN [ALIZAPRIDE] [Concomitant]
     Indication: Nausea
     Dosage: 50 MG-1 TAB/MIN. INTERVAL:1 HR./MAX 6 TAB PER 24 HOURS/ADMINISTER IF NAUSEA
     Route: 065
  8. OMEPRAZOLE [Concomitant]
     Active Substance: OMEPRAZOLE
     Dosage: 40 MG (1 TAB), QD
     Route: 065
  9. SIMVASTATIN [Concomitant]
     Active Substance: SIMVASTATIN
     Dosage: 20 MG (1 TAB), QD
     Route: 065
  10. ACETAMINOPHEN\TRAMADOL [Concomitant]
     Active Substance: ACETAMINOPHEN\TRAMADOL
     Dosage: 37.5/325 MG (1 TAB). QD
     Route: 065
  11. ALLOPURINOL [Concomitant]
     Active Substance: ALLOPURINOL
     Dosage: 300 MG (1/2 TABLET), QD
     Route: 065
  12. FELODIPINE\METOPROLOL SUCCINATE [Concomitant]
     Active Substance: FELODIPINE\METOPROLOL SUCCINATE
     Dosage: 1 TAB/MIN INTERVAL: 1 HR./MAX. 1 TAB PER 24 HRS/ADMINISTER IF: IF BP }120
     Route: 065
  13. EFFEXOR [Concomitant]
     Active Substance: VENLAFAXINE HYDROCHLORIDE
     Dosage: 75 MG (1 CAP), QD
     Route: 065
  14. METFORMIN [Concomitant]
     Active Substance: METFORMIN HYDROCHLORIDE
     Dosage: 500 M0G (1 TAB), QD
     Route: 065
  15. REVLIMID [Concomitant]
     Active Substance: LENALIDOMIDE
     Dosage: 10 MG (1 CAP) AT 8:10 PM
     Route: 065
     Dates: end: 20220604
  16. LORMETAZEPAM [Concomitant]
     Active Substance: LORMETAZEPAM
     Dosage: 2 MG (1 TAB) AT 8:00 PM
     Route: 065
  17. BRONCHOSEDAL DEXTROMETHORPHAN [Concomitant]
     Dosage: 200 ML (10 MG/5ML) 1 ML, BID
     Route: 065
  18. BRONCHOSEDAL DEXTROMETHORPHAN [Concomitant]
     Dosage: 200 ML (10 MG/5ML)-10 ML THREE TIMES A DAY
     Route: 065
  19. KALIUM-R [Concomitant]
     Dosage: 600 MG (2 TABLETS), BID
     Route: 065
  20. NYSTATIN [Concomitant]
     Active Substance: NYSTATIN
     Dosage: 500 ML - 1 APP THREE TIMES A DAY - COMPOSITION: LIDOCAINE 400 MG NYSTATIN 4.8 MIO OF UNITS = 48 ML
     Route: 065
  21. LEVOTHYROXINE SODIUM [Concomitant]
     Active Substance: LEVOTHYROXINE SODIUM
     Dosage: 125 ?G, 1 TAB QD
     Route: 065

REACTIONS (5)
  - Anaemia [Recovering/Resolving]
  - Enterobacter bacteraemia [Recovered/Resolved]
  - Klebsiella bacteraemia [Recovered/Resolved]
  - COVID-19 [Recovering/Resolving]
  - Thrombocytopenia [Recovering/Resolving]

NARRATIVE: CASE EVENT DATE: 20220604
